FAERS Safety Report 12392338 (Version 1)
Quarter: 2016Q2

REPORT INFORMATION
  Report Type: Report from Study
  Country: BE (occurrence: BE)
  Receive Date: 20160523
  Receipt Date: 20160523
  Transmission Date: 20160815
  Serious: Yes (Other)
  Sender: FDA-Public Use
  Company Number: BE-ROCHE-1761772

PATIENT
  Age: 67 Year
  Sex: Female

DRUGS (1)
  1. ERIVEDGE [Suspect]
     Active Substance: VISMODEGIB
     Indication: BASAL CELL CARCINOMA
     Route: 065
     Dates: start: 20150425, end: 20150619

REACTIONS (4)
  - Decreased appetite [Unknown]
  - Myalgia [Unknown]
  - Hepatotoxicity [Recovering/Resolving]
  - Dysgeusia [Unknown]
